FAERS Safety Report 17078872 (Version 1)
Quarter: 2019Q4

REPORT INFORMATION
  Report Type: Spontaneous
  Country: US (occurrence: US)
  Receive Date: 20191127
  Receipt Date: 20191127
  Transmission Date: 20200122
  Serious: Yes (Hospitalization, Other)
  Sender: FDA-Public Use
  Company Number: US-ASTELLAS-2019US046745

PATIENT
  Age: 55 Year
  Sex: Male

DRUGS (7)
  1. PREDNISONE. [Concomitant]
     Active Substance: PREDNISONE
     Dosage: 5-10 MG, ONCE DAILY
     Route: 065
  2. MYCOPHENOLATE MOFETIL. [Concomitant]
     Active Substance: MYCOPHENOLATE MOFETIL
     Indication: RENAL TRANSPLANT
     Route: 065
  3. MYCOPHENOLATE MOFETIL. [Concomitant]
     Active Substance: MYCOPHENOLATE MOFETIL
     Route: 065
  4. TACROLIMUS. [Suspect]
     Active Substance: TACROLIMUS
     Indication: RENAL TRANSPLANT
     Dosage: 1 MG MORNING, 2 MG EVENING, TWICE DAILY
     Route: 065
  5. TACROLIMUS. [Suspect]
     Active Substance: TACROLIMUS
     Dosage: UNK UNK, UNKNOWN FREQ.
     Route: 065
     Dates: start: 201903, end: 2019
  6. ISAVUCONAZOLE [Suspect]
     Active Substance: ISAVUCONAZOLE
     Indication: ENCEPHALITIS
     Dosage: UNK UNK, UNKNOWN FREQ.
     Route: 065
     Dates: start: 2019
  7. PREDNISONE. [Concomitant]
     Active Substance: PREDNISONE
     Indication: RENAL TRANSPLANT
     Route: 065

REACTIONS (6)
  - Product use in unapproved indication [Unknown]
  - Urinary tract infection enterococcal [Unknown]
  - Enterococcal infection [Unknown]
  - Pneumonia klebsiella [Unknown]
  - Cryptococcosis [Recovered/Resolved]
  - Encephalitis [Recovered/Resolved]

NARRATIVE: CASE EVENT DATE: 2019
